FAERS Safety Report 8643907 (Version 4)
Quarter: 2017Q1

REPORT INFORMATION
  Report Type: Report from Study
  Country: JP (occurrence: JP)
  Receive Date: 20120629
  Receipt Date: 20170221
  Transmission Date: 20170429
  Serious: Yes (Hospitalization, Other)
  Sender: FDA-Public Use
  Company Number: JP-BRISTOL-MYERS SQUIBB COMPANY-15853336

PATIENT
  Age: 26 Year
  Sex: Female
  Weight: 41 kg

DRUGS (12)
  1. PRIMPERAN [Concomitant]
     Active Substance: METOCLOPRAMIDE HYDROCHLORIDE
     Indication: NAUSEA
     Dosage: 10 MG, QD
     Route: 042
     Dates: start: 20100301, end: 20100301
  2. DIFLUCAN [Concomitant]
     Active Substance: FLUCONAZOLE
     Indication: IMMUNOSUPPRESSION
     Dosage: 200 MG, QD
     Route: 048
     Dates: start: 20100227, end: 20100306
  3. LASIX [Concomitant]
     Active Substance: FUROSEMIDE
     Indication: OEDEMA
     Dosage: 01MAR-01MAR10,10MG  07AUG-23AUG10,20MG(ORAL)
     Route: 042
     Dates: start: 20100301, end: 20100823
  4. DASATINIB [Suspect]
     Active Substance: DASATINIB
     Indication: CHRONIC MYELOID LEUKAEMIA
     Dosage: 70 MG, BID
     Route: 048
     Dates: start: 20100301, end: 20100731
  5. NEO-MINOPHAGEN C [Concomitant]
     Active Substance: AMMONIUM GLYCYRRHIZATE
     Indication: LIVER DISORDER
     Dosage: 60 ML, QD
     Route: 042
     Dates: start: 20100222, end: 20100303
  6. ZYLORIC [Concomitant]
     Active Substance: ALLOPURINOL
     Indication: CHRONIC MYELOID LEUKAEMIA
     Dosage: 200 MG, QD
     Route: 048
     Dates: end: 20100303
  7. CRAVIT [Concomitant]
     Active Substance: LEVOFLOXACIN
     Indication: IMMUNOSUPPRESSION
     Dosage: 500 MG, QD
     Route: 048
     Dates: start: 20100224, end: 20100308
  8. CYCLOPHOSPHAMIDE. [Suspect]
     Active Substance: CYCLOPHOSPHAMIDE
     Indication: CHRONIC MYELOID LEUKAEMIA
     Dosage: 422.4 MG, QD
     Route: 042
     Dates: start: 20100226, end: 20100302
  9. ONCOVIN [Suspect]
     Active Substance: VINCRISTINE SULFATE
     Indication: CHRONIC MYELOID LEUKAEMIA
     Dosage: 1.971 MG, QD
     Route: 042
     Dates: start: 20100226, end: 20100302
  10. ADRIACIN [Suspect]
     Active Substance: DOXORUBICIN HYDROCHLORIDE
     Indication: CHRONIC MYELOID LEUKAEMIA
     Dosage: 35.2 MG, QD
     Route: 042
     Dates: start: 20100226, end: 20100302
  11. METHOTREXATE. [Suspect]
     Active Substance: METHOTREXATE
     Indication: PRODUCT USED FOR UNKNOWN INDICATION
     Dosage: UNK
     Route: 065
  12. DECADRON [Concomitant]
     Active Substance: DEXAMETHASONE
     Indication: CHRONIC MYELOID LEUKAEMIA
     Dosage: 33 MG, QD
     Route: 042
     Dates: start: 20100226, end: 20100302

REACTIONS (7)
  - Platelet count decreased [Recovering/Resolving]
  - Anaemia [Recovered/Resolved]
  - Gastrointestinal haemorrhage [Recovered/Resolved]
  - Enterocolitis haemorrhagic [Recovered/Resolved]
  - Neutrophil count decreased [Recovered/Resolved]
  - Cytomegalovirus enterocolitis [Recovered/Resolved]
  - Pleurisy [Recovering/Resolving]

NARRATIVE: CASE EVENT DATE: 20100308
